FAERS Safety Report 19876382 (Version 1)
Quarter: 2021Q3

REPORT INFORMATION
  Report Type: Spontaneous
  Country: US (occurrence: US)
  Receive Date: 20210924
  Receipt Date: 20210924
  Transmission Date: 20211014
  Serious: Yes (Hospitalization)
  Sender: FDA-Public Use
  Company Number: US-AMGEN-USASP2021145013

PATIENT
  Age: 59 Year
  Sex: Male

DRUGS (1)
  1. XGEVA [Suspect]
     Active Substance: DENOSUMAB
     Indication: PROSTATE CANCER METASTATIC
     Dosage: UNK
     Route: 065
     Dates: start: 20210823, end: 2021

REACTIONS (4)
  - Blood calcium decreased [Unknown]
  - Dehydration [Unknown]
  - Blood sodium decreased [Unknown]
  - Pain [Unknown]

NARRATIVE: CASE EVENT DATE: 202108
